FAERS Safety Report 5115454-5 (Version None)
Quarter: 2006Q3

REPORT INFORMATION
  Report Type: 
  Country: None (occurrence: None)
  Receive Date: 20060922
  Receipt Date: 20060907
  Transmission Date: 20061208
  Serious: Yes (Other)
  Sender: FDA-Public Use
  Company Number: 30044

PATIENT
  Age: 59 Year
  Sex: Male

DRUGS (2)
  1. THEOLAIR-SR [Suspect]
     Indication: CHRONIC OBSTRUCTIVE PULMONARY DISEASE
     Dosage: 700 MG (350 MG, 2 IN 1 DAY (S)) ORAL
     Route: 048
     Dates: start: 20060115
  2. SERETIDE [Suspect]
     Indication: CHRONIC OBSTRUCTIVE PULMONARY DISEASE
     Dosage: 4 INHALANT (2 INHALANT, 2 IN 1 DAY (S)) INHALATION
     Route: 055
     Dates: start: 20060115

REACTIONS (8)
  - COLD SWEAT [None]
  - FATIGUE [None]
  - MUSCLE CONTRACTIONS INVOLUNTARY [None]
  - MYALGIA [None]
  - OEDEMA [None]
  - OSTEOPOROSIS [None]
  - PALPITATIONS [None]
  - TACHYCARDIA [None]
